FAERS Safety Report 7427375-3 (Version None)
Quarter: 2011Q2

REPORT INFORMATION
  Report Type: 
  Country: None (occurrence: None)
  Receive Date: 20110420
  Receipt Date: 20110418
  Transmission Date: 20111010
  Serious: Yes (Other)
  Sender: FDA-Public Use
  Company Number: IE-PFIZER INC-2010176417

PATIENT
  Age: 55 Year
  Sex: Female
  Weight: 58 kg

DRUGS (9)
  1. PERINDOPRIL [Concomitant]
     Indication: HYPERTENSION
     Dosage: UNK
  2. ELTROXIN [Interacting]
     Indication: THYROID DISORDER
     Dosage: UNK
     Dates: start: 20050101
  3. ACETYLSALICYLIC ACID [Concomitant]
     Dosage: 35 MG DAILY
  4. TEGRETOL [Interacting]
     Indication: EPILEPSY
     Dosage: 300 MG, 2X/DAY
     Route: 048
     Dates: start: 19910101
  5. LIPITOR [Suspect]
     Indication: BLOOD CHOLESTEROL INCREASED
     Dosage: 40 MG, 1X/DAY
     Route: 048
     Dates: start: 20050101, end: 20101217
  6. ELTROXIN [Interacting]
     Dosage: 125 UG, 1X/DAY
     Dates: start: 20110104
  7. TEGRETOL [Interacting]
     Indication: CONVULSION
     Dosage: 500 MG, 1X/DAY
     Route: 048
  8. ELTROXIN [Interacting]
     Indication: EPILEPSY
     Dosage: 100 UG, 1X/DAY
     Route: 048
     Dates: start: 20100101
  9. SERETIDE [Concomitant]
     Dosage: UNK
     Route: 055

REACTIONS (4)
  - BLOOD THYROID STIMULATING HORMONE INCREASED [None]
  - DRUG LEVEL INCREASED [None]
  - DRUG INTERACTION [None]
  - AMNESIA [None]
